FAERS Safety Report 9786987 (Version 1)
Quarter: 2013Q4

REPORT INFORMATION
  Report Type: Spontaneous
  Country: US (occurrence: US)
  Receive Date: 20131227
  Receipt Date: 20131227
  Transmission Date: 20140711
  Serious: Yes (Other)
  Sender: FDA-Public Use
  Company Number: CHPA2013US018818

PATIENT
  Sex: Male

DRUGS (3)
  1. VOLTAREN GEL [Suspect]
     Indication: ARTHRITIS
     Dosage: UNK
     Route: 061
     Dates: start: 2008
  2. VOLTAREN GEL [Suspect]
     Indication: DIABETIC NEUROPATHY
  3. VOLTAREN GEL [Suspect]
     Indication: OFF LABEL USE

REACTIONS (6)
  - Herpes zoster [Unknown]
  - Nerve injury [Unknown]
  - Lung infection [Unknown]
  - Staphylococcal infection [Unknown]
  - Limb injury [Unknown]
  - Rash [Unknown]
